FAERS Safety Report 9133652 (Version 1)
Quarter: 2013Q1

REPORT INFORMATION
  Report Type: Spontaneous
  Country: IE (occurrence: IE)
  Receive Date: 20130301
  Receipt Date: 20130301
  Transmission Date: 20140127
  Serious: Yes (Other)
  Sender: FDA-Public Use
  Company Number: PHFR2004IE03390

PATIENT
  Sex: Male

DRUGS (3)
  1. CLOZARIL [Suspect]
     Indication: SCHIZOPHRENIA
     Dosage: 100 MG, BID
     Route: 048
     Dates: start: 20040812, end: 20040904
  2. PAROXETINE [Concomitant]
     Dosage: 40 MG, MANE
  3. OMACOR [Concomitant]

REACTIONS (11)
  - Left ventricular hypertrophy [Unknown]
  - Myocardial ischaemia [Unknown]
  - Sinus tachycardia [Unknown]
  - Viral infection [Unknown]
  - Influenza like illness [Unknown]
  - Pyrexia [Unknown]
  - Rash macular [Unknown]
  - White blood cell count decreased [Unknown]
  - Vision blurred [Unknown]
  - Diarrhoea [Unknown]
  - Headache [Unknown]
